FAERS Safety Report 4653525-8 (Version None)
Quarter: 2005Q2

REPORT INFORMATION
  Report Type: 
  Country: None (occurrence: None)
  Receive Date: 20050503
  Receipt Date: 20050421
  Transmission Date: 20051028
  Serious: Yes (Hospitalization)
  Sender: FDA-Public Use
  Company Number: A03200501175

PATIENT
  Age: 68 Year
  Sex: Female

DRUGS (9)
  1. PLAVIX [Suspect]
     Indication: ARTERIAL OCCLUSIVE DISEASE
     Dosage: 75 MG QD - ORAL
     Route: 048
     Dates: start: 20041201, end: 20041201
  2. INFLIXIMAB [Concomitant]
  3. METHOTREXATE [Concomitant]
  4. RALOXIFENE HCL [Concomitant]
  5. ENALAPRIL MALEATE [Concomitant]
  6. LEVOTHYROXINE SODIUM [Concomitant]
  7. HYDROCHLOROTHIAZIDE [Concomitant]
  8. ACETYL SALICYLIC ACID USP BAT [Concomitant]
  9. IRON [Concomitant]

REACTIONS (2)
  - DIARRHOEA [None]
  - INFLUENZA [None]
